FAERS Safety Report 4837706-6 (Version None)
Quarter: 2005Q4

REPORT INFORMATION
  Report Type: 
  Country: None (occurrence: None)
  Receive Date: 20051128
  Receipt Date: 20051117
  Transmission Date: 20060501
  Serious: Yes (Hospitalization)
  Sender: FDA-Public Use
  Company Number: NL-MERCK-0511NLD00024

PATIENT
  Age: 42 Year
  Sex: Female

DRUGS (3)
  1. COZAAR [Suspect]
     Indication: HYPERTENSION
     Route: 048
     Dates: end: 20051026
  2. TERBUTALINE SULFATE [Concomitant]
     Route: 065
     Dates: end: 20051026
  3. BECLOMETHASONE DIPROPIONATE [Concomitant]
     Route: 065
     Dates: end: 20051026

REACTIONS (1)
  - PANCREATITIS ACUTE [None]
